FAERS Safety Report 9442818 (Version 2)
Quarter: 2013Q3

REPORT INFORMATION
  Report Type: Report from Study
  Country: US (occurrence: US)
  Receive Date: 20130806
  Receipt Date: 20130807
  Transmission Date: 20140515
  Serious: Yes (Hospitalization, Other)
  Sender: FDA-Public Use
  Company Number: US-ABBOTT-13P-163-1126474-00

PATIENT
  Age: 41 Year
  Sex: Male

DRUGS (12)
  1. HUMIRA [Suspect]
     Indication: CROHN^S DISEASE
     Dates: start: 20130207, end: 20130628
  2. HUMIRA [Suspect]
     Dates: start: 20130718
  3. METHOTREXATE [Concomitant]
     Indication: CROHN^S DISEASE
     Route: 050
  4. PANTOPRAZOLE [Concomitant]
     Indication: GASTROOESOPHAGEAL REFLUX DISEASE
  5. TOPAMAX [Concomitant]
     Indication: MIGRAINE
  6. RELPAX [Concomitant]
     Indication: MIGRAINE
  7. CHOLESTYRAMINE [Concomitant]
     Indication: POSTOPERATIVE CARE
  8. VITAMIN D [Concomitant]
     Indication: VITAMIN SUPPLEMENTATION
  9. CALCIUM CITRATE [Concomitant]
     Indication: MINERAL SUPPLEMENTATION
  10. MULTIVITAMIN [Concomitant]
     Indication: VITAMIN SUPPLEMENTATION
  11. SUPER B COMPLEX (WHICH HAS FOLIC ACID) [Concomitant]
     Indication: VITAMIN SUPPLEMENTATION
  12. CYMBALTA [Concomitant]
     Indication: PAIN

REACTIONS (5)
  - Arthralgia [Recovering/Resolving]
  - Ligament rupture [Recovering/Resolving]
  - Mobility decreased [Recovering/Resolving]
  - Thrombosis [Recovering/Resolving]
  - Migraine [Unknown]
